FAERS Safety Report 8351908-6 (Version None)
Quarter: 2012Q2

REPORT INFORMATION
  Report Type: 
  Country: None (occurrence: None)
  Receive Date: 20120511
  Receipt Date: 20120508
  Transmission Date: 20120825
  Serious: Yes (Hospitalization, Other)
  Sender: FDA-Public Use
  Company Number: US-PFIZER INC-2012096935

PATIENT
  Sex: Female
  Weight: 82 kg

DRUGS (10)
  1. NOVOLOG [Concomitant]
     Dosage: UNK
  2. EFFEXOR XR [Suspect]
     Indication: ANXIETY
     Dosage: 75 MG, 1X/DAY
     Route: 048
  3. EFFEXOR XR [Suspect]
     Dosage: 150 MG, 2X/DAY
     Route: 048
     Dates: start: 20080101, end: 20120408
  4. METFORMIN [Concomitant]
     Dosage: 1000 MG, 2X/DAY
  5. LEVOTHYROXINE [Concomitant]
     Dosage: 50 UG, 1X/DAY
  6. EFFEXOR XR [Suspect]
     Indication: DEPRESSION
     Dosage: 150 MG, 1X/DAY
     Route: 048
     Dates: end: 20080101
  7. ENALAPRIL [Concomitant]
     Dosage: 5 MG, 1X/DAY
  8. SYMLIN [Concomitant]
     Dosage: UNK
  9. DICLOFENAC [Concomitant]
     Dosage: 75 MG, 2X/DAY
  10. LANTUS [Concomitant]
     Dosage: UNK

REACTIONS (5)
  - TINNITUS [None]
  - HEADACHE [None]
  - DIZZINESS [None]
  - CONVULSION [None]
  - WITHDRAWAL SYNDROME [None]
